FAERS Safety Report 10157580 (Version 1)
Quarter: 2014Q2

REPORT INFORMATION
  Report Type: Spontaneous
  Country: US (occurrence: US)
  Receive Date: 20140507
  Receipt Date: 20140507
  Transmission Date: 20141212
  Serious: Yes (Other)
  Sender: FDA-Public Use
  Company Number: US-PFIZER INC-2014122820

PATIENT
  Age: 51 Year
  Sex: Female
  Weight: 45.35 kg

DRUGS (6)
  1. TOVIAZ [Suspect]
     Indication: SALIVARY HYPERSECRETION
     Dosage: 8 MG, 2X/DAY
     Route: 048
     Dates: start: 2013
  2. OXYCODONE [Concomitant]
     Dosage: UNK
  3. FENTANYL [Concomitant]
     Dosage: UNK
  4. VALIUM [Concomitant]
     Dosage: UNK
  5. BACLOFEN [Concomitant]
     Dosage: UNK
  6. VIMOVO [Concomitant]
     Indication: GASTRIC DISORDER
     Dosage: UNK

REACTIONS (6)
  - Choking [Unknown]
  - Salivary hypersecretion [Unknown]
  - Bedridden [Not Recovered/Not Resolved]
  - Haemorrhoids [Unknown]
  - Impaired driving ability [Not Recovered/Not Resolved]
  - Gait disturbance [Not Recovered/Not Resolved]
